FAERS Safety Report 18961382 (Version 1)
Quarter: 2021Q1

REPORT INFORMATION
  Report Type: Spontaneous
  Country: FR (occurrence: FR)
  Receive Date: 20210303
  Receipt Date: 20210303
  Transmission Date: 20210420
  Serious: Yes (Hospitalization)
  Sender: FDA-Public Use
  Company Number: FR-TEVA-2021-FR-1885435

PATIENT
  Age: 64 Year
  Sex: Male

DRUGS (9)
  1. LEVODOPA/BENSERAZIDE [Suspect]
     Active Substance: BENSERAZIDE\LEVODOPA
     Indication: PARKINSON^S DISEASE
     Route: 065
     Dates: start: 201202
  2. PRAMIPEXOLE. [Suspect]
     Active Substance: PRAMIPEXOLE
     Indication: PARKINSON^S DISEASE
     Dosage: DOSE BETWEEN 1.4 AND 2.1 MG PER DAY.
     Route: 065
     Dates: start: 200702, end: 201411
  3. RASAGILINE. [Suspect]
     Active Substance: RASAGILINE
     Route: 065
     Dates: start: 201503, end: 2016
  4. NALTREXONE [Suspect]
     Active Substance: NALTREXONE
     Dosage: 50 MILLIGRAM DAILY;
     Route: 065
     Dates: start: 201802, end: 20190225
  5. NALTREXONE [Suspect]
     Active Substance: NALTREXONE
     Dosage: 50 MILLIGRAM DAILY;
     Route: 065
     Dates: start: 201903
  6. RASAGILINE. [Suspect]
     Active Substance: RASAGILINE
     Indication: PARKINSON^S DISEASE
     Route: 065
     Dates: start: 2010, end: 2012
  7. NALTREXONE [Suspect]
     Active Substance: NALTREXONE
     Indication: HYPERSEXUALITY
     Dosage: 50 MILLIGRAM DAILY;
     Route: 065
     Dates: start: 201609, end: 201802
  8. SERTRALINE [Concomitant]
     Active Substance: SERTRALINE HYDROCHLORIDE
     Indication: DEPRESSION
     Route: 065
  9. RASAGILINE. [Suspect]
     Active Substance: RASAGILINE
     Route: 065
     Dates: start: 201701, end: 201703

REACTIONS (3)
  - Impulse-control disorder [Recovering/Resolving]
  - Off label use [Unknown]
  - Hypersexuality [Recovering/Resolving]

NARRATIVE: CASE EVENT DATE: 201401
